FAERS Safety Report 19217688 (Version 1)
Quarter: 2021Q2

REPORT INFORMATION
  Report Type: Spontaneous
  Country: GB (occurrence: GB)
  Receive Date: 20210505
  Receipt Date: 20210505
  Transmission Date: 20210717
  Serious: Yes (Other)
  Sender: FDA-Public Use
  Company Number: GB-MYLANLABS-2021M1026052

PATIENT
  Age: 35 Year
  Sex: Female
  Weight: 112.48 kg

DRUGS (3)
  1. IRON [Concomitant]
     Active Substance: IRON
     Dosage: UNK
  2. CETIRIZINE [Suspect]
     Active Substance: CETIRIZINE HYDROCHLORIDE
     Indication: PRURITUS
     Dosage: 1 DOSAGE FORM, QD
     Route: 048
     Dates: start: 20210421, end: 20210424
  3. PARACETAMOL [Concomitant]
     Active Substance: ACETAMINOPHEN
     Dosage: UNK

REACTIONS (12)
  - Anxiety [Not Recovered/Not Resolved]
  - Headache [Not Recovered/Not Resolved]
  - Mood altered [Not Recovered/Not Resolved]
  - Cough [Not Recovered/Not Resolved]
  - Thirst [Not Recovered/Not Resolved]
  - Delusion [Not Recovered/Not Resolved]
  - Tearfulness [Not Recovered/Not Resolved]
  - Paranoia [Not Recovered/Not Resolved]
  - Tremor [Not Recovered/Not Resolved]
  - Somnolence [Not Recovered/Not Resolved]
  - Disorientation [Not Recovered/Not Resolved]
  - Dry mouth [Not Recovered/Not Resolved]

NARRATIVE: CASE EVENT DATE: 20210422
